FAERS Safety Report 14657885 (Version 1)
Quarter: 2018Q1

REPORT INFORMATION
  Report Type: Spontaneous
  Country: US (occurrence: US)
  Receive Date: 20180320
  Receipt Date: 20180320
  Transmission Date: 20180509
  Serious: No
  Sender: FDA-Public Use
  Company Number: US-TEVA-767091USA

PATIENT
  Age: 63 Year
  Sex: Female

DRUGS (1)
  1. SUCRALFATE. [Suspect]
     Active Substance: SUCRALFATE
     Indication: OESOPHAGEAL IRRITATION
     Route: 065
     Dates: start: 2016, end: 2016

REACTIONS (4)
  - Micturition disorder [Recovered/Resolved]
  - Product use in unapproved indication [Recovered/Resolved]
  - Cystitis [Recovered/Resolved]
  - Bladder irritation [Recovered/Resolved]

NARRATIVE: CASE EVENT DATE: 2016
